FAERS Safety Report 6095976-3 (Version None)
Quarter: 2009Q1

REPORT INFORMATION
  Report Type: 
  Country: None (occurrence: None)
  Receive Date: 20090227
  Receipt Date: 20080811
  Transmission Date: 20090719
  Serious: No
  Sender: FDA-Public Use
  Company Number: A0739909A

PATIENT
  Age: 10 Year
  Sex: Female
  Weight: 81 kg

DRUGS (1)
  1. LAMICTAL [Suspect]
     Dosage: 30MG PER DAY
     Route: 048
     Dates: start: 20070315

REACTIONS (1)
  - ANTINUCLEAR ANTIBODY POSITIVE [None]
